FAERS Safety Report 24922416 (Version 1)
Quarter: 2025Q1

REPORT INFORMATION
  Report Type: Spontaneous
  Country: US (occurrence: None)
  Receive Date: 20250203
  Receipt Date: 20250203
  Transmission Date: 20250408
  Serious: Yes (Life-Threatening, Hospitalization)
  Sender: FDA-CTU
  Company Number: None

PATIENT
  Age: 66 Year
  Sex: Male
  Weight: 78.9 kg

DRUGS (1)
  1. ISOVUE 370 [Suspect]
     Active Substance: IOPAMIDOL
     Indication: Imaging procedure
     Route: 042
     Dates: start: 20250109

REACTIONS (3)
  - Anaphylactic reaction [None]
  - Contrast media reaction [None]
  - Lactic acidosis [None]

NARRATIVE: CASE EVENT DATE: 20250109
